FAERS Safety Report 10969924 (Version 2)
Quarter: 2015Q2

REPORT INFORMATION
  Report Type: Spontaneous
  Country: US (occurrence: US)
  Receive Date: 20150331
  Receipt Date: 20150421
  Transmission Date: 20150821
  Serious: Yes (Life-Threatening, Hospitalization)
  Sender: FDA-Public Use
  Company Number: US-PFIZER INC-2015107234

PATIENT
  Age: 63 Year
  Sex: Female

DRUGS (1)
  1. NEURONTIN [Suspect]
     Active Substance: GABAPENTIN
     Dosage: UNK

REACTIONS (10)
  - Drug hypersensitivity [Unknown]
  - Dizziness [Unknown]
  - Dysarthria [Unknown]
  - Pharyngeal oedema [Unknown]
  - Dysstasia [Unknown]
  - Dyspnoea [Unknown]
  - Gait disturbance [Unknown]
  - Peripheral swelling [Unknown]
  - Drug intolerance [Unknown]
  - Tongue discolouration [Unknown]

NARRATIVE: CASE EVENT DATE: 20010127
